FAERS Safety Report 4784003-3 (Version None)
Quarter: 2005Q3

REPORT INFORMATION
  Report Type: 
  Country: None (occurrence: None)
  Receive Date: 20050927
  Receipt Date: 20050603
  Transmission Date: 20060218
  Serious: No
  Sender: FDA-Public Use
  Company Number: SP00449

PATIENT
  Age: 71 Year
  Sex: Male
  Weight: 68.0396 kg

DRUGS (5)
  1. XIFAXAN [Suspect]
     Indication: OVERGROWTH BACTERIAL
     Dosage: 200MG/TID, ORAL
     Route: 048
     Dates: start: 20050526, end: 20050601
  2. DONNATAL [Concomitant]
  3. NORTRIPTLINE [Concomitant]
  4. PROTONIX [Concomitant]
  5. VIOKASE [Concomitant]

REACTIONS (2)
  - DIARRHOEA [None]
  - FLATULENCE [None]
